FAERS Safety Report 15397195 (Version 1)
Quarter: 2018Q3

REPORT INFORMATION
  Report Type: Spontaneous
  Country: DE (occurrence: DE)
  Receive Date: 20180918
  Receipt Date: 20180918
  Transmission Date: 20181010
  Serious: Yes (Other)
  Sender: FDA-Public Use
  Company Number: DE-EMD SERONO-9044101

PATIENT
  Age: 34 Year
  Sex: Female

DRUGS (1)
  1. INTERFERON BETA NOS [Suspect]
     Active Substance: INTERFERON BETA
     Indication: RELAPSING-REMITTING MULTIPLE SCLEROSIS
     Dates: start: 201103, end: 201712

REACTIONS (2)
  - Sensory disturbance [Unknown]
  - Spinal cord disorder [Recovered/Resolved]

NARRATIVE: CASE EVENT DATE: 201107
